FAERS Safety Report 7041714-7 (Version None)
Quarter: 2010Q4

REPORT INFORMATION
  Report Type: 
  Country: None (occurrence: None)
  Receive Date: 20101013
  Receipt Date: 20100615
  Transmission Date: 20110411
  Serious: No
  Sender: FDA-Public Use
  Company Number: US-ASTRAZENECA-2010SE12579

PATIENT
  Sex: Female

DRUGS (2)
  1. SYMBICORT [Suspect]
     Indication: BRONCHITIS
     Dosage: 160/4.5 UG, 2 PUFFS
     Route: 055
     Dates: start: 20100310
  2. ALBUTEROL [Concomitant]

REACTIONS (1)
  - CHEST DISCOMFORT [None]
